FAERS Safety Report 5035249-0 (Version None)
Quarter: 2006Q2

REPORT INFORMATION
  Report Type: 
  Country: None (occurrence: None)
  Receive Date: 20060622
  Receipt Date: 20060622
  Transmission Date: 20061013
  Serious: Yes (Hospitalization)
  Sender: FDA-Public Use
  Company Number: None

PATIENT
  Age: 38 Day
  Sex: Female
  Weight: 4.526 kg

DRUGS (6)
  1. CHLORPHENIRAMINE MALEATE [Suspect]
     Dosage: 0.4MG  QID PO
     Route: 048
     Dates: start: 20050319, end: 20050320
  2. MUCOSPECT [Concomitant]
  3. COUGH SYRUP -COCILLANA [Concomitant]
  4. NH3 ACETATE [Concomitant]
  5. SENEGA LIQUID [Concomitant]
  6. SCILAE LIQUID [Concomitant]

REACTIONS (4)
  - DECREASED APPETITE [None]
  - DYSPNOEA [None]
  - OXYGEN SATURATION DECREASED [None]
  - RESPIRATORY DISORDER [None]
